FAERS Safety Report 15595683 (Version 4)
Quarter: 2019Q1

REPORT INFORMATION
  Report Type: Spontaneous
  Country: CA (occurrence: CA)
  Receive Date: 20181107
  Receipt Date: 20190315
  Transmission Date: 20190417
  Serious: Yes (Other)
  Sender: FDA-Public Use
  Company Number: CA-ORION CORPORATION ORION PHARMA-TREX2018-3166

PATIENT
  Sex: Female

DRUGS (3)
  1. LEFLUNOMIDE. [Concomitant]
     Active Substance: LEFLUNOMIDE
     Route: 065
     Dates: start: 201804
  2. PLAQUENIL S [Concomitant]
     Active Substance: HYDROXYCHLOROQUINE SULFATE
     Route: 065
     Dates: start: 201804
  3. METHOTREXATE (TRADE NAME UNKNOWN) [Suspect]
     Active Substance: METHOTREXATE
     Indication: PRODUCT USED FOR UNKNOWN INDICATION
     Route: 065
     Dates: start: 201404, end: 201609

REACTIONS (10)
  - Hypertension [Unknown]
  - Urinary tract infection [Unknown]
  - Muscle strain [Unknown]
  - Malaise [Unknown]
  - Blood cholesterol abnormal [Unknown]
  - Nephrolithiasis [Unknown]
  - Nasopharyngitis [Unknown]
  - Breast cancer [Recovering/Resolving]
  - Influenza [Unknown]
  - Gastrointestinal disorder [Unknown]
